FAERS Safety Report 8524354-X (Version None)
Quarter: 2012Q2

REPORT INFORMATION
  Report Type: 
  Country: None (occurrence: None)
  Receive Date: 20120406
  Receipt Date: 20110808
  Transmission Date: 20120825
  Serious: Yes (Death)
  Sender: FDA-Public Use
  Company Number: US-2011-10548

PATIENT
  Age: 35 Year
  Sex: Male

DRUGS (15)
  1. LIDOCAINE [Suspect]
     Indication: NEUROPATHY PERIPHERAL
     Dosage: TRANSDERMAL
     Route: 062
  2. DAPSONE [Concomitant]
  3. PREDNISONE [Concomitant]
  4. FLUDARABINE PHOSPHATE [Suspect]
     Indication: STEM CELL TRANSPLANT
  5. BUSULFEX [Suspect]
     Indication: STEM CELL TRANSPLANT
     Dosage: INTRAVENOUS
     Route: 042
  6. ACYCLOVIR [Concomitant]
  7. AMITRIPTYLINE HYDROCHLORIDE [Concomitant]
  8. URSODIOL [Concomitant]
  9. TACROLIMUS [Concomitant]
  10. PREGABALIN [Concomitant]
  11. SIROLIMUS [Concomitant]
  12. ALLOPURINOL [Suspect]
  13. POSACONAZOLE [Concomitant]
  14. NORFLOXACIN [Interacting]
  15. HYDROXYUREA [Concomitant]

REACTIONS (1)
  - VENOOCCLUSIVE LIVER DISEASE [None]
